FAERS Safety Report 13980390 (Version 3)
Quarter: 2017Q4

REPORT INFORMATION
  Report Type: Spontaneous
  Country: RU (occurrence: RU)
  Receive Date: 20170918
  Receipt Date: 20171009
  Transmission Date: 20180321
  Serious: No
  Sender: FDA-Public Use
  Company Number: RU-ROCHE-1980077

PATIENT
  Age: 44 Year
  Sex: Male

DRUGS (4)
  1. BENDAMUSTINE [Concomitant]
     Active Substance: BENDAMUSTINE
     Dosage: 90 MG/ M 2/ PER ONCE MONTH
     Route: 065
     Dates: start: 20160519, end: 20160812
  2. GAZYVA [Suspect]
     Active Substance: OBINUTUZUMAB
     Indication: B-CELL LYMPHOMA
     Dosage: DAY 1, 8, 15 IN?1 COURSE
     Route: 042
     Dates: start: 20160519, end: 20160617
  3. RIBOMUSTIN [Concomitant]
     Active Substance: BENDAMUSTINE HYDROCHLORIDE
     Dosage: DAYS 1-2
     Route: 065
     Dates: start: 20160519, end: 20160717
  4. GAZYVA [Suspect]
     Active Substance: OBINUTUZUMAB
     Dosage: 2 COURSE ON G-B SCHEME?DAY 1 IN 2 COURSES
     Route: 042
     Dates: start: 20160714, end: 20160812

REACTIONS (1)
  - Leukopenia [Unknown]

NARRATIVE: CASE EVENT DATE: 201606
